FAERS Safety Report 22075153 (Version 1)
Quarter: 2023Q1

REPORT INFORMATION
  Report Type: Spontaneous
  Country: FR (occurrence: FR)
  Receive Date: 20230308
  Receipt Date: 20230308
  Transmission Date: 20230418
  Serious: Yes (Hospitalization)
  Sender: FDA-Public Use
  Company Number: None

PATIENT
  Age: 84 Year
  Sex: Male
  Weight: 80 kg

DRUGS (1)
  1. ALFUZOSIN [Suspect]
     Active Substance: ALFUZOSIN
     Indication: Product used for unknown indication
     Dosage: 50 MG,1 TOTAL,(5 TABLETS OF ALFUSOZINE LP 10 MG)
     Route: 048
     Dates: start: 20221219

REACTIONS (2)
  - Hypotension [Recovered/Resolved with Sequelae]
  - Product administration error [Recovered/Resolved with Sequelae]

NARRATIVE: CASE EVENT DATE: 20221219
